FAERS Safety Report 10027703 (Version 1)
Quarter: 2014Q1

REPORT INFORMATION
  Report Type: Spontaneous
  Country: US (occurrence: US)
  Receive Date: 20140321
  Receipt Date: 20140321
  Transmission Date: 20141002
  Serious: Yes (Other)
  Sender: FDA-Public Use
  Company Number: US-MALLINCKRODT-T201304508

PATIENT
  Age: 28 Year
  Sex: Male
  Weight: 92.97 kg

DRUGS (2)
  1. METHADONE DISPERSIBLE (ORANGE FLAVORED) [Suspect]
     Indication: DRUG WITHDRAWAL MAINTENANCE THERAPY
     Dosage: 40 MG, QD
     Route: 048
     Dates: start: 20130820
  2. METHADONE [Concomitant]
     Indication: DRUG WITHDRAWAL MAINTENANCE THERAPY

REACTIONS (1)
  - Convulsion [Unknown]
